FAERS Safety Report 23355480 (Version 1)
Quarter: 2024Q1

REPORT INFORMATION
  Report Type: Spontaneous
  Country: FR (occurrence: FR)
  Receive Date: 20240102
  Receipt Date: 20240102
  Transmission Date: 20240410
  Serious: Yes (Other)
  Sender: FDA-Public Use
  Company Number: FR-MYLANLABS-2023M1040321

PATIENT

DRUGS (2)
  1. IMATINIB [Suspect]
     Active Substance: IMATINIB
     Indication: Dermatofibrosarcoma protuberans
     Dosage: UNK, QD, RECEIVED AT A DOSE 400 TO 800 MG
  2. IMATINIB [Suspect]
     Active Substance: IMATINIB
     Dosage: UNK, QD, RECEIVED AT A DOSE 400 TO 800 MG.

REACTIONS (3)
  - Drug ineffective [Unknown]
  - Disease progression [Unknown]
  - Treatment failure [Unknown]
